FAERS Safety Report 15423240 (Version 2)
Quarter: 2018Q4

REPORT INFORMATION
  Report Type: Spontaneous
  Country: US (occurrence: US)
  Receive Date: 20180925
  Receipt Date: 20181003
  Transmission Date: 20190204
  Serious: Yes (Other)
  Sender: FDA-Public Use
  Company Number: US-PURDUE PHARMA-USA-2018-0144801

PATIENT
  Age: 67 Year
  Sex: Female

DRUGS (4)
  1. LYRICA [Suspect]
     Active Substance: PREGABALIN
     Indication: PAIN
     Dosage: 75 MG, TID
     Route: 048
  2. LYRICA [Suspect]
     Active Substance: PREGABALIN
     Dosage: 50 MG, UNK
     Route: 048
  3. OXYCODONE HYDROCHLORIDE (SIMILAR TO NDA 22-272) [Suspect]
     Active Substance: OXYCODONE HYDROCHLORIDE
     Indication: PRODUCT USED FOR UNKNOWN INDICATION
     Route: 048
  4. GABAPENTIN. [Suspect]
     Active Substance: GABAPENTIN
     Indication: PRODUCT USED FOR UNKNOWN INDICATION
     Route: 048

REACTIONS (12)
  - Spinal operation [Unknown]
  - Drug withdrawal syndrome [Unknown]
  - Nausea [Unknown]
  - Tremor [Unknown]
  - Nervousness [Unknown]
  - Pain [Unknown]
  - Nightmare [Unknown]
  - Neck surgery [Unknown]
  - Drug ineffective [Unknown]
  - Somnolence [Unknown]
  - Agitation [Unknown]
  - Panic attack [Unknown]

NARRATIVE: CASE EVENT DATE: 20180904
